FAERS Safety Report 6891236-9 (Version None)
Quarter: 2010Q3

REPORT INFORMATION
  Report Type: 
  Country: None (occurrence: None)
  Receive Date: 20100731
  Receipt Date: 20090708
  Transmission Date: 20110219
  Serious: No
  Sender: FDA-Public Use
  Company Number: US-PFIZER INC-2009222428

PATIENT
  Sex: Male
  Weight: 52.2 kg

DRUGS (2)
  1. LIPITOR [Suspect]
     Indication: BLOOD CHOLESTEROL INCREASED
     Dosage: 20 MG, 1X/DAY
  2. SYNTHROID [Concomitant]
     Dosage: UNK

REACTIONS (1)
  - SCLERAL DISCOLOURATION [None]
